FAERS Safety Report 8524065 (Version 7)
Quarter: 2013Q1

REPORT INFORMATION
  Report Type: Spontaneous
  Country: FR (occurrence: FR)
  Receive Date: 20120420
  Receipt Date: 20130219
  Transmission Date: 20140127
  Serious: Yes (Death, Life-Threatening, Hospitalization)
  Sender: FDA-Public Use
  Company Number: FR-B.I. PHARMACEUTICALS,INC./RIDGEFIELD-2012-FF-00483FF

PATIENT
  Age: 88 Year
  Sex: Male
  Weight: 71 kg

DRUGS (12)
  1. PRADAXA [Suspect]
     Indication: ATRIAL FIBRILLATION
     Dosage: 220 MG
     Route: 048
  2. KARDEGIC [Suspect]
     Dosage: 75 MG
     Route: 048
  3. TAHOR [Concomitant]
     Dosage: 40 MG
     Route: 048
  4. PARIET [Concomitant]
     Dosage: 20 MG
     Route: 048
  5. HEMIGOXINE [Concomitant]
     Route: 048
  6. SINEMET [Concomitant]
     Dosage: 100/25
     Route: 048
  7. MODOPAR [Concomitant]
     Dosage: 62.5 MG
     Route: 048
  8. FUROSEMIDE [Concomitant]
     Dosage: 40 MG
     Route: 048
  9. CARDENSIEL [Concomitant]
     Dosage: 1.25 MG
     Route: 048
  10. SYMBICORT [Concomitant]
     Route: 055
  11. SPIRIVA [Concomitant]
     Route: 055
  12. GLUCOPHAGE [Concomitant]
     Dosage: 1700 MG
     Route: 048

REACTIONS (1)
  - Subdural haematoma [Fatal]
